FAERS Safety Report 10307496 (Version 1)
Quarter: 2014Q3

REPORT INFORMATION
  Report Type: Spontaneous
  Country: US (occurrence: None)
  Receive Date: 20140714
  Receipt Date: 20140714
  Transmission Date: 20150326
  Serious: Yes (Other)
  Sender: FDA-Public Use
  Company Number: None

PATIENT
  Age: 66 Year
  Sex: Female
  Weight: 83.01 kg

DRUGS (2)
  1. INSULIN ASPART [Suspect]
     Active Substance: INSULIN ASPART
     Indication: DRUG THERAPY
     Dates: start: 20140515, end: 20140705
  2. INSULIN GLARGINE [Suspect]
     Active Substance: INSULIN GLARGINE
     Indication: DRUG THERAPY
     Dosage: RX6632170
     Route: 058
     Dates: start: 20140506, end: 20140710

REACTIONS (10)
  - VIIth nerve paralysis [None]
  - Blood glucose increased [None]
  - Eyelid ptosis [None]
  - Head discomfort [None]
  - Ear pain [None]
  - Headache [None]
  - Adverse drug reaction [None]
  - Ear discomfort [None]
  - Product quality issue [None]
  - Ocular discomfort [None]

NARRATIVE: CASE EVENT DATE: 20140710
